FAERS Safety Report 23096787 (Version 3)
Quarter: 2023Q4

REPORT INFORMATION
  Report Type: Spontaneous
  Country: US (occurrence: US)
  Receive Date: 20231023
  Receipt Date: 20231206
  Transmission Date: 20240109
  Serious: No
  Sender: FDA-Public Use
  Company Number: US-PFIZER INC-PV202300173780

PATIENT
  Age: 74 Year
  Sex: Female
  Weight: 89.796 kg

DRUGS (3)
  1. METHIMAZOLE [Suspect]
     Active Substance: METHIMAZOLE
     Indication: Hyperthyroidism
     Dosage: 5 MG, DAILY
     Route: 048
     Dates: start: 20220525
  2. METHIMAZOLE [Suspect]
     Active Substance: METHIMAZOLE
     Dosage: 5 MG, EVERY OTHER DAY
  3. BIOTIN [Concomitant]
     Active Substance: BIOTIN
     Dosage: BETWEEN 5,000 + 10,000 A DAY

REACTIONS (2)
  - Alopecia [Not Recovered/Not Resolved]
  - Off label use [Unknown]

NARRATIVE: CASE EVENT DATE: 20220525
